FAERS Safety Report 8763696 (Version 4)
Quarter: 2014Q1

REPORT INFORMATION
  Report Type: Report from Study
  Country: JP (occurrence: JP)
  Receive Date: 20120828
  Receipt Date: 20140331
  Transmission Date: 20141002
  Serious: Yes (Hospitalization)
  Sender: FDA-Public Use
  Company Number: JP-VERTEX PHARMACEUTICAL INC.-AE-2012-010115

PATIENT
  Age: 61 Year
  Sex: Female

DRUGS (9)
  1. VX-950 (TELAPREVIR) [Suspect]
     Indication: CHRONIC HEPATITIS C
     Dosage: 1500 MG, QD
     Route: 048
     Dates: start: 20120516, end: 20120629
  2. VX-950 (TELAPREVIR) [Suspect]
     Dosage: 1500 MG, QD
     Route: 048
     Dates: start: 20120703, end: 20120807
  3. RIBAVIRIN [Suspect]
     Indication: CHRONIC HEPATITIS C
     Dosage: 400 MG, QD
     Route: 048
     Dates: start: 20120516, end: 20120703
  4. RIBAVIRIN [Suspect]
     Dosage: 200 MG, QD
     Route: 048
     Dates: start: 20120704, end: 20120821
  5. PEGINTERFERON ALFA-2B [Suspect]
     Indication: CHRONIC HEPATITIS C
     Dosage: 1.5 ?G/KG, QW
     Route: 058
     Dates: start: 20120516, end: 20120905
  6. PURSENNID [Concomitant]
     Dosage: 2 DF, PRN
     Route: 048
     Dates: start: 20120516
  7. VOLTAREN [Concomitant]
     Dosage: 25 MG, PRN
     Route: 054
     Dates: start: 20120516
  8. LENDORMIN [Concomitant]
     Dosage: 0.25 MG, PRN
     Route: 048
     Dates: start: 20120706
  9. LASIX [Concomitant]
     Dosage: 40 MG, QD
     Route: 048
     Dates: start: 20120822, end: 20120918

REACTIONS (1)
  - Drug eruption [Recovered/Resolved]
